FAERS Safety Report 21968602 (Version 1)
Quarter: 2023Q1

REPORT INFORMATION
  Report Type: Spontaneous
  Country: US (occurrence: None)
  Receive Date: 20230207
  Receipt Date: 20230207
  Transmission Date: 20230417
  Serious: No
  Sender: FDA-Public Use
  Company Number: None

PATIENT
  Age: 33 Year
  Sex: Male
  Weight: 105.3 kg

DRUGS (2)
  1. GABAPENTIN [Suspect]
     Active Substance: GABAPENTIN
     Indication: Pain
     Dosage: OTHER QUANTITY : 1 CAPSULE(S);?FREQUENCY : 3 TIMES A DAY;?
     Route: 048
     Dates: start: 20230207, end: 20230207
  2. LINZESS [Concomitant]
     Active Substance: LINACLOTIDE

REACTIONS (5)
  - Palpitations [None]
  - Flushing [None]
  - Burning sensation [None]
  - Ataxia [None]
  - Product substitution issue [None]

NARRATIVE: CASE EVENT DATE: 20230207
